FAERS Safety Report 24528001 (Version 1)
Quarter: 2024Q4

REPORT INFORMATION
  Report Type: Spontaneous
  Country: US (occurrence: None)
  Receive Date: 20241018
  Receipt Date: 20241018
  Transmission Date: 20250114
  Serious: Yes (Hospitalization)
  Sender: Public
  Company Number: None

PATIENT
  Sex: Female

DRUGS (3)
  1. AMBRISENTAN [Suspect]
     Active Substance: AMBRISENTAN
     Indication: Pulmonary arterial hypertension
     Dosage: FREQUENCY : DAILY;?
     Route: 048
     Dates: start: 202310
  2. ORENITRAM (MNTH 1 TITR) [Concomitant]
  3. ADEMPAS [Concomitant]

REACTIONS (4)
  - Hypotension [None]
  - Headache [None]
  - Nausea [None]
  - Therapy interrupted [None]
